FAERS Safety Report 7672955-3 (Version None)
Quarter: 2011Q3

REPORT INFORMATION
  Report Type: 
  Country: None (occurrence: None)
  Receive Date: 20110809
  Receipt Date: 20110804
  Transmission Date: 20111222
  Serious: Yes (Death)
  Sender: FDA-Public Use
  Company Number: US-GILEAD-2011-0042047

PATIENT
  Sex: Female

DRUGS (4)
  1. LASIX [Concomitant]
  2. LEVAQUIN [Concomitant]
  3. LETAIRIS [Suspect]
     Indication: PULMONARY HYPERTENSION
     Route: 048
  4. LETAIRIS [Suspect]
     Indication: SCLERODERMA

REACTIONS (1)
  - DEATH [None]
